FAERS Safety Report 7076488-7 (Version None)
Quarter: 2010Q4

REPORT INFORMATION
  Report Type: 
  Country: None (occurrence: None)
  Receive Date: 20101029
  Receipt Date: 20101029
  Transmission Date: 20110411
  Serious: No
  Sender: FDA-Public Use
  Company Number: None

PATIENT
  Age: 61 Year
  Sex: Male
  Weight: 97.5234 kg

DRUGS (1)
  1. ALEVE [Suspect]
     Indication: ARTHRALGIA
     Dosage: 220 MG (NSAID) EVERY 12 HRS. 2 TIMESA DAY
     Dates: start: 20100818

REACTIONS (2)
  - ABDOMINAL PAIN UPPER [None]
  - PRODUCT COMMINGLING [None]
